FAERS Safety Report 13101239 (Version 1)
Quarter: 2017Q1

REPORT INFORMATION
  Report Type: Spontaneous
  Country: US (occurrence: US)
  Receive Date: 20170110
  Receipt Date: 20170110
  Transmission Date: 20170428
  Serious: Yes (Death)
  Sender: FDA-Public Use
  Company Number: US-BAYER-2017-000991

PATIENT
  Age: 86 Year
  Sex: Female

DRUGS (1)
  1. ACETYLSALICYLIC ACID + CAFFEINE [Suspect]
     Active Substance: ASPIRIN\CAFFEINE
     Dosage: UNK
     Route: 048

REACTIONS (2)
  - Medication error [Fatal]
  - Accidental overdose [Fatal]
